FAERS Safety Report 7369544-7 (Version None)
Quarter: 2011Q1

REPORT INFORMATION
  Report Type: 
  Country: None (occurrence: None)
  Receive Date: 20110323
  Receipt Date: 20110322
  Transmission Date: 20110831
  Serious: No
  Sender: FDA-Public Use
  Company Number: US-TEVA-271837USA

PATIENT
  Age: 19 Year
  Sex: Female
  Weight: 63.56 kg

DRUGS (5)
  1. PLAN B ONE-STEP [Suspect]
     Indication: POST COITAL CONTRACEPTION
     Route: 048
  2. PLAN B ONE-STEP [Suspect]
     Route: 048
  3. PLAN B ONE-STEP [Suspect]
     Route: 048
  4. ANTIBIOTIC [Concomitant]
     Indication: GASTRIC ULCER
     Route: 048
  5. PLAN B ONE-STEP [Suspect]
     Route: 048
     Dates: start: 20110312, end: 20110312

REACTIONS (4)
  - HEADACHE [None]
  - NAUSEA [None]
  - MENSTRUATION IRREGULAR [None]
  - ABDOMINAL PAIN UPPER [None]
